FAERS Safety Report 17903590 (Version 1)
Quarter: 2020Q2

REPORT INFORMATION
  Report Type: Spontaneous
  Country: US (occurrence: US)
  Receive Date: 20200616
  Receipt Date: 20200616
  Transmission Date: 20200714
  Serious: Yes (Other)
  Sender: FDA-Public Use
  Company Number: US-PURDUE PHARMA-USA-2020-0153144

PATIENT
  Sex: Female

DRUGS (1)
  1. OXYCONTIN [Suspect]
     Active Substance: OXYCODONE HYDROCHLORIDE
     Indication: PRODUCT USED FOR UNKNOWN INDICATION
     Dosage: ALL DIFFERENT OVER THE YEARS
     Route: 048
     Dates: start: 2008, end: 2013

REACTIONS (3)
  - Drug dependence [Recovered/Resolved]
  - Road traffic accident [Unknown]
  - Impaired work ability [Unknown]

NARRATIVE: CASE EVENT DATE: 2009
